FAERS Safety Report 25760142 (Version 1)
Quarter: 2025Q3

REPORT INFORMATION
  Report Type: Spontaneous
  Country: US (occurrence: None)
  Receive Date: 20250903
  Receipt Date: 20250903
  Transmission Date: 20251021
  Serious: Yes (Other)
  Sender: FDA-CTU
  Company Number: None

PATIENT
  Sex: Female

DRUGS (11)
  1. MYCOPHENOLATE MOFETIL [Suspect]
     Active Substance: MYCOPHENOLATE MOFETIL
     Indication: Psoriasis
     Route: 048
     Dates: start: 20240907
  2. ASPIRIN LOW TAB 81MG [Concomitant]
  3. CELEBREX  CAP 200MG [Concomitant]
  4. CLARITIN  TAB 10MG [Concomitant]
  5. HYDROXYCHLOROQUINE [Concomitant]
     Active Substance: HYDROXYCHLOROQUINE
  6. LEVOTHYROXINE [Concomitant]
     Active Substance: LEVOTHYROXINE
  7. MELATONIN [Concomitant]
     Active Substance: MELATONIN
  8. MULTIVITAMIN TAB WOMENS [Concomitant]
  9. PATADAY  SOL 0.7% [Concomitant]
  10. PRILOSEC [Concomitant]
     Active Substance: OMEPRAZOLE MAGNESIUM
  11. RANITIDINE HYDROCHLORIDE [Concomitant]
     Active Substance: RANITIDINE HYDROCHLORIDE

REACTIONS (1)
  - Diarrhoea [None]
